FAERS Safety Report 18559742 (Version 1)
Quarter: 2020Q4

REPORT INFORMATION
  Report Type: Spontaneous
  Country: ES (occurrence: ES)
  Receive Date: 20201130
  Receipt Date: 20201130
  Transmission Date: 20210114
  Serious: Yes (Other)
  Sender: FDA-Public Use
  Company Number: ES-PFIZER INC-2020092955

PATIENT
  Age: 67 Year
  Sex: Female

DRUGS (3)
  1. TOVIAZ [Suspect]
     Active Substance: FESOTERODINE FUMARATE
     Indication: VESICOURETERIC REFLUX
     Dosage: 8 MG
     Dates: start: 20200225, end: 20200227
  2. TOVIAZ [Suspect]
     Active Substance: FESOTERODINE FUMARATE
     Dosage: 8 MG
     Dates: start: 202003
  3. NOCTAMID [Concomitant]
     Active Substance: LORMETAZEPAM
     Indication: SLEEP DISORDER
     Dosage: 5 MG, (TAKES LITTLE, NOT EVERY DAY)

REACTIONS (9)
  - Urticaria [Recovered/Resolved]
  - COVID-19 [Unknown]
  - Drug hypersensitivity [Recovered/Resolved]
  - Off label use [Unknown]
  - Rash [Recovered/Resolved]
  - Pain [Recovered/Resolved]
  - Rash macular [Recovered/Resolved]
  - Pruritus [Recovered/Resolved]
  - Erythema [Recovered/Resolved]

NARRATIVE: CASE EVENT DATE: 2020
